FAERS Safety Report 5241311-X (Version None)
Quarter: 2007Q1

REPORT INFORMATION
  Report Type: 
  Country: None (occurrence: None)
  Receive Date: 20070220
  Receipt Date: 20070202
  Transmission Date: 20070707
  Serious: Yes (Other)
  Sender: FDA-Public Use
  Company Number: NL-JNJFOC-20061006181

PATIENT
  Sex: Female
  Weight: 72 kg

DRUGS (1)
  1. CONCERTA [Suspect]
     Indication: ATTENTION DEFICIT/HYPERACTIVITY DISORDER
     Route: 048

REACTIONS (7)
  - CONTUSION [None]
  - DRUG HYPERSENSITIVITY [None]
  - MUSCLE SPASMS [None]
  - PALPITATIONS [None]
  - PYREXIA [None]
  - RASH [None]
  - VOMITING [None]
